FAERS Safety Report 6089537-X (Version None)
Quarter: 2009Q1

REPORT INFORMATION
  Report Type: 
  Country: None (occurrence: None)
  Receive Date: 20090220
  Receipt Date: 20090220
  Transmission Date: 20090719
  Serious: Yes (Other)
  Sender: FDA-Public Use
  Company Number: None

PATIENT
  Age: 52 Year
  Sex: Male
  Weight: 119.296 kg

DRUGS (4)
  1. SERTRALINE [Suspect]
     Indication: DEPRESSION
     Dosage: 1 TAB PO DAILY
     Route: 048
     Dates: start: 20080101, end: 20090101
  2. DILTIAZEM [Concomitant]
  3. TRAZODONE HCL [Concomitant]
  4. METHADONE HCL [Concomitant]

REACTIONS (3)
  - DRUG INEFFECTIVE [None]
  - SEDATION [None]
  - THERAPEUTIC RESPONSE UNEXPECTED WITH DRUG SUBSTITUTION [None]
